FAERS Safety Report 25593546 (Version 3)
Quarter: 2025Q3

REPORT INFORMATION
  Report Type: Spontaneous
  Country: EU (occurrence: EU)
  Receive Date: 20250722
  Receipt Date: 20250820
  Transmission Date: 20251020
  Serious: Yes (Hospitalization, Other)
  Sender: ALEXION PHARMACEUTICALS
  Company Number: EU-AstraZeneca-CH-00914205A

PATIENT
  Age: 44 Year
  Sex: Female

DRUGS (1)
  1. SAPHNELO [Suspect]
     Active Substance: ANIFROLUMAB-FNIA
     Indication: Systemic lupus erythematosus

REACTIONS (13)
  - Cardiac tamponade [Unknown]
  - Systemic lupus erythematosus [Unknown]
  - Right ventricular failure [Unknown]
  - Viral pericarditis [Recovering/Resolving]
  - Herpes simplex test positive [Recovering/Resolving]
  - Viral infection [Unknown]
  - Myalgia [Unknown]
  - Oedema [Unknown]
  - Chest discomfort [Unknown]
  - Inflammation [Unknown]
  - Weight decreased [Unknown]
  - Chest pain [Unknown]
  - Dyspnoea [Unknown]
